FAERS Safety Report 13171263 (Version 2)
Quarter: 2017Q1

REPORT INFORMATION
  Report Type: Report from Study
  Country: US (occurrence: US)
  Receive Date: 20170201
  Receipt Date: 20170317
  Transmission Date: 20170428
  Serious: Yes (Other)
  Sender: FDA-Public Use
  Company Number: US-AMGEN-USACT2017013574

PATIENT
  Age: 63 Year
  Sex: Male
  Weight: 79.55 kg

DRUGS (14)
  1. ISATUXIMAB [Suspect]
     Active Substance: ISATUXIMAB
     Dosage: UNK
     Route: 042
  2. ISATUXIMAB [Suspect]
     Active Substance: ISATUXIMAB
     Dosage: UNK
     Route: 042
  3. ACYCLOVIR. [Concomitant]
     Active Substance: ACYCLOVIR
     Dosage: 400 MG, BID
     Route: 048
     Dates: start: 20140511
  4. ISATUXIMAB [Suspect]
     Active Substance: ISATUXIMAB
     Dosage: UNK
     Route: 042
  5. ISATUXIMAB [Suspect]
     Active Substance: ISATUXIMAB
     Dosage: UNK
     Route: 042
  6. ISATUXIMAB [Suspect]
     Active Substance: ISATUXIMAB
     Indication: PLASMA CELL MYELOMA
     Dosage: 10 MG/KG, PER CHEMO REGIM
     Route: 042
     Dates: start: 20170124
  7. ASPIRIN. [Concomitant]
     Active Substance: ASPIRIN
     Dosage: 81 MG, QD
     Route: 048
     Dates: start: 20160901
  8. CARFILZOMIB [Suspect]
     Active Substance: CARFILZOMIB
     Indication: PLASMA CELL MYELOMA
     Dosage: 20 MG/M2, PER CHEMO REGIM
     Route: 042
     Dates: start: 20170124
  9. METFORMIN [Concomitant]
     Active Substance: METFORMIN HYDROCHLORIDE
     Dosage: 500 MG, BID
     Route: 048
     Dates: start: 20140623
  10. SITAGLIPTIN [Concomitant]
     Active Substance: SITAGLIPTIN
     Dosage: 100 MG, QD
     Route: 048
     Dates: start: 20140511
  11. ISATUXIMAB [Suspect]
     Active Substance: ISATUXIMAB
     Dosage: UNK
     Route: 042
  12. ISATUXIMAB [Suspect]
     Active Substance: ISATUXIMAB
     Dosage: UNK
     Route: 042
  13. ISATUXIMAB [Suspect]
     Active Substance: ISATUXIMAB
     Dosage: UNK
     Route: 042
  14. BACLOFEN. [Concomitant]
     Active Substance: BACLOFEN
     Dosage: 10 MG, 0.5 TABLET AS NECESSARY
     Route: 048
     Dates: start: 20161006

REACTIONS (1)
  - Presyncope [Unknown]

NARRATIVE: CASE EVENT DATE: 20170124
